FAERS Safety Report 16366160 (Version 1)
Quarter: 2019Q3

REPORT INFORMATION
  Report Type: Spontaneous
  Country: US (occurrence: US)
  Receive Date: 20190528
  Receipt Date: 20190528
  Transmission Date: 20191004
  Serious: Yes (Hospitalization)
  Sender: FDA-Public Use
  Company Number: None

PATIENT

DRUGS (1)
  1. VENTOLIN [Suspect]
     Active Substance: ALBUTEROL SULFATE

REACTIONS (5)
  - Anxiety [None]
  - Heart rate increased [None]
  - Chest pain [None]
  - Dizziness [None]
  - Dyspnoea [None]
